FAERS Safety Report 20590187 (Version 1)
Quarter: 2022Q1

REPORT INFORMATION
  Report Type: Spontaneous
  Country: US (occurrence: None)
  Receive Date: 20220312
  Receipt Date: 20220312
  Transmission Date: 20220424
  Serious: Yes (Other)
  Sender: FDA-Public Use
  Company Number: None

PATIENT
  Age: 13 Year
  Sex: Female

DRUGS (5)
  1. CHLORHEXIDINE [Suspect]
     Active Substance: CHLORHEXIDINE
     Indication: Infection prophylaxis
     Dosage: OTHER FREQUENCY : SURGERY PREP;?
     Route: 061
     Dates: start: 20220301, end: 20220309
  2. Acetaminophen Codeine 300-30 mg (one every 6 hours) [Concomitant]
  3. Advil (occasional) [Concomitant]
  4. Aspirin 81 mg (daily since March 1st) [Concomitant]
  5. BENADRYL [Concomitant]
     Active Substance: DIPHENHYDRAMINE HYDROCHLORIDE

REACTIONS (1)
  - Rash [None]

NARRATIVE: CASE EVENT DATE: 20220309
